FAERS Safety Report 5876758-1 (Version None)
Quarter: 2008Q3

REPORT INFORMATION
  Report Type: 
  Country: None (occurrence: None)
  Receive Date: 20080909
  Receipt Date: 20080909
  Transmission Date: 20090109
  Serious: No
  Sender: FDA-Public Use
  Company Number: None

PATIENT
  Age: 28 Year
  Sex: Female
  Weight: 56.6996 kg

DRUGS (2)
  1. PAXIL [Suspect]
     Indication: DEPRESSION
     Dosage: 75MG 1 DAILY PO
     Route: 048
     Dates: start: 20040601, end: 20061028
  2. LEXAPRO [Suspect]
     Indication: DEPRESSION
     Dosage: 20MG 1 DIALY PO
     Route: 048
     Dates: start: 20061027, end: 20080529

REACTIONS (1)
  - DRUG WITHDRAWAL SYNDROME [None]
